FAERS Safety Report 22280803 (Version 9)
Quarter: 2023Q2

REPORT INFORMATION
  Report Type: Report from Study
  Country: US (occurrence: US)
  Receive Date: 20230503
  Receipt Date: 20230627
  Transmission Date: 20230721
  Serious: Yes (Life-Threatening, Hospitalization)
  Sender: FDA-Public Use
  Company Number: US-AMGEN-USACT2023075139

PATIENT
  Age: 61 Year
  Sex: Male
  Weight: 50.18 kg

DRUGS (9)
  1. SOTORASIB [Suspect]
     Active Substance: SOTORASIB
     Indication: K-ras gene mutation
     Dosage: 960 MILLIGRAM, QD
     Route: 048
     Dates: start: 20230413
  2. SOTORASIB [Suspect]
     Active Substance: SOTORASIB
     Indication: Colorectal cancer stage II
  3. RMC-4630 [Suspect]
     Active Substance: RMC-4630
     Indication: K-ras gene mutation
     Dosage: 200 MILLIGRAM D1,D2 EVERY 7 DAYS
     Route: 048
     Dates: start: 20230413
  4. RMC-4630 [Suspect]
     Active Substance: RMC-4630
     Indication: Colorectal cancer stage II
  5. ONDANSETRON [Suspect]
     Active Substance: ONDANSETRON
     Indication: Vomiting
     Dosage: 8 MILLIGRAM
     Route: 048
     Dates: start: 20230427
  6. TAMSULOSIN [Concomitant]
     Active Substance: TAMSULOSIN
     Dosage: 0.4 MILLIGRAM, QD
     Route: 048
     Dates: start: 202105
  7. OXYCODONE [Concomitant]
     Active Substance: OXYCODONE
     Dosage: 10 MILLIGRAM, AS NECESSARY
     Route: 048
     Dates: start: 202106
  8. MS CONTIN [Concomitant]
     Active Substance: MORPHINE SULFATE
     Dosage: 60 MILLIGRAM Q12M
     Route: 048
     Dates: start: 20230313
  9. CIPROFLOXACIN [Concomitant]
     Active Substance: CIPROFLOXACIN
     Dosage: 500 MILLIGRAM, Q12M
     Route: 048
     Dates: start: 20230414, end: 20230425

REACTIONS (2)
  - Electrocardiogram QT prolonged [Recovered/Resolved]
  - Cardiac arrest [Recovered/Resolved]

NARRATIVE: CASE EVENT DATE: 20230428
